FAERS Safety Report 6442559-9 (Version None)
Quarter: 2009Q4

REPORT INFORMATION
  Report Type: 
  Country: None (occurrence: None)
  Receive Date: 20091117
  Receipt Date: 20091111
  Transmission Date: 20100525
  Serious: Yes (Other)
  Sender: FDA-Public Use
  Company Number: GB-BAXTER-2009BH013385

PATIENT
  Age: 57 Year
  Sex: Male
  Weight: 65 kg

DRUGS (5)
  1. ADVATE [Suspect]
     Indication: HAEMOPHILIA
     Route: 042
     Dates: start: 20090807, end: 20090807
  2. ADVATE [Suspect]
     Route: 042
     Dates: start: 20090810, end: 20090810
  3. ADVATE [Suspect]
     Route: 042
     Dates: start: 20090813, end: 20090813
  4. ADVATE [Suspect]
     Route: 042
     Dates: start: 20090817, end: 20090817
  5. ACETAMINOPHEN WITH PROPOXYPHENE HCL TAB [Concomitant]
     Route: 048

REACTIONS (5)
  - CHEST PAIN [None]
  - DYSPNOEA [None]
  - HANGOVER [None]
  - HEADACHE [None]
  - HYPERHIDROSIS [None]
